FAERS Safety Report 8906415 (Version 1)
Quarter: 2012Q4

REPORT INFORMATION
  Report Type: Spontaneous
  Country: US (occurrence: None)
  Receive Date: 20121112
  Receipt Date: 20121112
  Transmission Date: 20130627
  Serious: Yes (Hospitalization, Other)
  Sender: FDA-Public Use
  Company Number: None

PATIENT
  Age: 41 Year
  Sex: Male
  Weight: 124.74 kg

DRUGS (4)
  1. CITALOPRAM [Suspect]
     Indication: DEPRESSION
     Dosage: 1 pill once per day p.m.
     Dates: start: 20120409, end: 20120531
  2. CITALOPRAM [Suspect]
     Indication: MOOD SWINGS
     Dosage: 1 pill once per day p.m.
     Dates: start: 20120409, end: 20120531
  3. CITALOPRAM [Suspect]
     Indication: DEPRESSION
     Dosage: 1 pill once per day p.m.

throwed bottles + pills away
     Dates: start: 20120531, end: 201209
  4. CITALOPRAM [Suspect]
     Indication: MOOD SWINGS
     Dosage: 1 pill once per day p.m.

throwed bottles + pills away
     Dates: start: 20120531, end: 201209

REACTIONS (4)
  - Penile pain [None]
  - Fungal infection [None]
  - Drug ineffective [None]
  - Libido decreased [None]
